FAERS Safety Report 7772837-2 (Version None)
Quarter: 2011Q3

REPORT INFORMATION
  Report Type: 
  Country: None (occurrence: None)
  Receive Date: 20110922
  Receipt Date: 20110422
  Transmission Date: 20111222
  Serious: No
  Sender: FDA-Public Use
  Company Number: US-ASTRAZENECA-2011SE24252

PATIENT
  Age: 39 Year
  Sex: Female
  Weight: 81.6 kg

DRUGS (7)
  1. LORTAB [Concomitant]
  2. AMBIEN [Concomitant]
  3. LEVOTHYROXINE SODIUM [Concomitant]
  4. ESTRADIOL [Concomitant]
  5. CYMBALTA [Concomitant]
  6. VISTARIL [Concomitant]
  7. SEROQUEL XR [Suspect]
     Indication: BIPOLAR DISORDER
     Route: 048
     Dates: start: 20110401, end: 20110401

REACTIONS (5)
  - HEADACHE [None]
  - TEETHING [None]
  - MYDRIASIS [None]
  - FLUSHING [None]
  - DYSGEUSIA [None]
